FAERS Safety Report 25058720 (Version 1)
Quarter: 2025Q1

REPORT INFORMATION
  Report Type: Spontaneous
  Country: FR (occurrence: FR)
  Receive Date: 20250310
  Receipt Date: 20250310
  Transmission Date: 20250409
  Serious: Yes (Other)
  Sender: AUROBINDO
  Company Number: FR-AFSSAPS-AVNT2025000117

PATIENT
  Age: 82 Year
  Sex: Male

DRUGS (1)
  1. ZOLPIDEM [Suspect]
     Active Substance: ZOLPIDEM TARTRATE
     Indication: Product used for unknown indication
     Dosage: 10 MILLIGRAM, ONCE A DAY(1 TABLET IN THE EVENING AT BEDTIME)
     Route: 048
     Dates: start: 2015

REACTIONS (1)
  - Drug use disorder [Not Recovered/Not Resolved]
